FAERS Safety Report 10024887 (Version 3)
Quarter: 2014Q2

REPORT INFORMATION
  Report Type: Spontaneous
  Country: US (occurrence: US)
  Receive Date: 20140320
  Receipt Date: 20140424
  Transmission Date: 20141212
  Serious: Yes (Hospitalization)
  Sender: FDA-Public Use
  Company Number: US-BAXTER-2014BAX014168

PATIENT
  Age: 51 Year
  Sex: Male

DRUGS (6)
  1. DIANEAL LOW CALCIUM [Suspect]
     Indication: RENAL FAILURE CHRONIC
     Route: 033
     Dates: start: 2013
  2. DIANEAL LOW CALCIUM [Suspect]
     Dosage: TOTAL FILL VOLUME
     Route: 033
  3. DIANEAL LOW CALCIUM [Suspect]
     Indication: PERITONEAL DIALYSIS
     Route: 033
  4. EXTRANEAL [Suspect]
     Indication: RENAL FAILURE CHRONIC
     Route: 033
     Dates: start: 2013
  5. EXTRANEAL [Suspect]
     Dosage: TOTAL FILL VOLUME
     Route: 033
  6. MINOXIDIL [Concomitant]
     Indication: HYPERTENSION
     Route: 048

REACTIONS (2)
  - Encephalopathy [Recovering/Resolving]
  - Pneumonia [Recovered/Resolved]
